FAERS Safety Report 21714568 (Version 1)
Quarter: 2022Q4

REPORT INFORMATION
  Report Type: Spontaneous
  Country: US (occurrence: None)
  Receive Date: 20221211
  Receipt Date: 20221211
  Transmission Date: 20230113
  Serious: Yes (Hospitalization)
  Sender: FDA-Public Use
  Company Number: None

PATIENT
  Sex: Female

DRUGS (2)
  1. CAPECITABINE [Suspect]
     Active Substance: CAPECITABINE
     Indication: Breast cancer
  2. CAPECITABINE [Suspect]
     Active Substance: CAPECITABINE

REACTIONS (3)
  - Fall [None]
  - Cerebral haemorrhage [None]
  - Therapy cessation [None]
